FAERS Safety Report 4731484-7 (Version None)
Quarter: 2005Q3

REPORT INFORMATION
  Report Type: 
  Country: None (occurrence: None)
  Receive Date: 20050801
  Receipt Date: 20050801
  Transmission Date: 20060218
  Serious: Yes (Hospitalization, Other)
  Sender: FDA-Public Use
  Company Number: None

PATIENT
  Sex: Female
  Weight: 64.5 kg

DRUGS (15)
  1. DOCETAXEL [Suspect]
     Indication: BREAST CANCER
     Dosage: SEE IMAGE
     Dates: start: 20050711
  2. DOXORUBICIN [Suspect]
     Dosage: SEE IMAGE
     Dates: end: 20050525
  3. CYCLOPHOSPHAMIDE [Suspect]
     Dosage: SEE IMAGE
     Dates: end: 20050525
  4. DOXORUBICIN [Suspect]
     Dosage: SEE IMAGE
     Dates: end: 20050525
  5. CYCLOPHOSPHAMIDE [Suspect]
     Dosage: SEE IMAGE
     Dates: end: 20050525
  6. PACLITAXEL [Suspect]
     Dosage: SEE IMAGE
     Dates: start: 20050711, end: 20050711
  7. ACYCLOVIR [Concomitant]
  8. AMOXICILLIN/K CLAV [Concomitant]
  9. ANZEMET [Concomitant]
  10. ATENOLOL [Concomitant]
  11. DEXAMETHASONE [Concomitant]
  12. LORAZEPAM [Concomitant]
  13. NEUPOGEN [Concomitant]
  14. PROCRIT [Concomitant]
  15. VICODIN [Concomitant]

REACTIONS (5)
  - ACUTE RESPIRATORY DISTRESS SYNDROME [None]
  - ASPERGILLOSIS [None]
  - CATHETER RELATED INFECTION [None]
  - CULTURE POSITIVE [None]
  - LUNG INFILTRATION [None]
